FAERS Safety Report 11050044 (Version 1)
Quarter: 2015Q2

REPORT INFORMATION
  Report Type: Spontaneous
  Country: US (occurrence: US)
  Receive Date: 20150420
  Receipt Date: 20150420
  Transmission Date: 20150821
  Serious: No
  Sender: FDA-Public Use
  Company Number: US-PURDUE-USA-2015-0120633

PATIENT
  Age: 52 Year
  Sex: Female

DRUGS (3)
  1. OXYCODONE HCL TABLETS (RHODES 91-490) [Suspect]
     Active Substance: OXYCODONE HYDROCHLORIDE
     Indication: PAIN
  2. OXYCODONE HCL TABLETS (RHODES 91-490) [Suspect]
     Active Substance: OXYCODONE HYDROCHLORIDE
     Indication: INTERVERTEBRAL DISC DEGENERATION
     Dosage: 20 MG, UNK
     Route: 048
     Dates: start: 20141210, end: 20141012
  3. OXYCODONE HCL TABLETS (RHODES 91-490) [Suspect]
     Active Substance: OXYCODONE HYDROCHLORIDE
     Indication: SCIATICA
     Dosage: 30 MG, QID
     Route: 048
     Dates: start: 20150122, end: 20150127

REACTIONS (6)
  - Drug ineffective [Unknown]
  - Dysgeusia [Unknown]
  - Paraesthesia oral [Unknown]
  - Product taste abnormal [Unknown]
  - Bone pain [Unknown]
  - Hypoaesthesia oral [None]

NARRATIVE: CASE EVENT DATE: 20141210
